FAERS Safety Report 24393414 (Version 1)
Quarter: 2024Q4

REPORT INFORMATION
  Report Type: Spontaneous
  Country: US (occurrence: US)
  Receive Date: 20241003
  Receipt Date: 20241003
  Transmission Date: 20250114
  Serious: No
  Sender: HARMONY BIOSCIENCES
  Company Number: US-HARMONY BIOSCIENCES-2024HMY01271

PATIENT

DRUGS (2)
  1. WAKIX [Suspect]
     Active Substance: PITOLISANT HYDROCHLORIDE
     Dosage: UNK
     Dates: start: 2024, end: 2024
  2. UNSPECIFIED INGREDIENT [Suspect]
     Active Substance: UNSPECIFIED INGREDIENT
     Indication: Contraception

REACTIONS (3)
  - Exposure during pregnancy [Recovered/Resolved]
  - Abortion spontaneous [Recovered/Resolved]
  - Drug interaction [Recovered/Resolved]

NARRATIVE: CASE EVENT DATE: 20240101
